FAERS Safety Report 5794220-1 (Version None)
Quarter: 2008Q2

REPORT INFORMATION
  Report Type: 
  Country: None (occurrence: None)
  Receive Date: 20080627
  Receipt Date: 20080619
  Transmission Date: 20081010
  Serious: Yes (Hospitalization, Other)
  Sender: FDA-Public Use
  Company Number: BR-ABBOTT-08P-020-0457284-00

PATIENT
  Age: 23 Year
  Sex: Male
  Weight: 60 kg

DRUGS (5)
  1. HUMIRA [Suspect]
     Indication: CROHN'S DISEASE
     Route: 058
     Dates: start: 20071101, end: 20071101
  2. HUMIRA [Suspect]
     Dates: start: 20071101, end: 20080401
  3. REMICADE [Suspect]
     Indication: CROHN'S DISEASE
  4. REMICADE [Suspect]
  5. AZATHIOPRINE [Concomitant]
     Indication: CROHN'S DISEASE
     Route: 048
     Dates: start: 19980101

REACTIONS (6)
  - ABSCESS [None]
  - COMPUTERISED TOMOGRAM ABNORMAL [None]
  - COMPUTERISED TOMOGRAM THORAX ABNORMAL [None]
  - DRUG INEFFECTIVE [None]
  - FISTULA [None]
  - TUBERCULOSIS [None]
